FAERS Safety Report 9391886 (Version 1)
Quarter: 2013Q3

REPORT INFORMATION
  Report Type: Spontaneous
  Country: US (occurrence: US)
  Receive Date: 20130709
  Receipt Date: 20130709
  Transmission Date: 20140515
  Serious: Yes (Hospitalization)
  Sender: FDA-Public Use
  Company Number: US-PERRIGO-13US006969

PATIENT
  Age: 22 Year
  Sex: Female

DRUGS (1)
  1. ACETAMINOPHEN 650MG ER 544 [Suspect]
     Indication: TOOTHACHE
     Dosage: 6 G, QD
     Route: 048
     Dates: end: 2013

REACTIONS (4)
  - Acute hepatic failure [Recovered/Resolved]
  - Accidental overdose [Recovered/Resolved]
  - Hepatic encephalopathy [Recovered/Resolved]
  - Exposure during pregnancy [Unknown]
